FAERS Safety Report 25124218 (Version 1)
Quarter: 2025Q1

REPORT INFORMATION
  Report Type: Spontaneous
  Country: JP (occurrence: JP)
  Receive Date: 20250326
  Receipt Date: 20250326
  Transmission Date: 20250409
  Serious: Yes (Hospitalization, Other)
  Sender: AMGEN
  Company Number: JP-AMGEN-JPNSP2025055581

PATIENT
  Age: 59 Year
  Sex: Female
  Weight: 45 kg

DRUGS (9)
  1. SODIUM PHENYLBUTYRATE [Suspect]
     Active Substance: SODIUM PHENYLBUTYRATE
     Indication: Urea cycle disorder
     Dosage: 4500 MILLIGRAM, QD
     Route: 065
  2. SODIUM PHENYLBUTYRATE [Suspect]
     Active Substance: SODIUM PHENYLBUTYRATE
     Dosage: 18000 MILLIGRAM, QD
     Route: 065
  3. PREDNISOLONE [Concomitant]
     Active Substance: PREDNISOLONE
     Dosage: 35 MILLIGRAM, QD
  4. PREDNISOLONE [Concomitant]
     Active Substance: PREDNISOLONE
     Dosage: 4 MILLIGRAM, QD
  5. PREDNISOLONE [Concomitant]
     Active Substance: PREDNISOLONE
     Dosage: 4.0-7.5 MG, QD
  6. Sugar [Concomitant]
  7. LACTULOSE [Concomitant]
     Active Substance: LACTULOSE
  8. ARGININE [Concomitant]
     Active Substance: ARGININE
     Dosage: 12000 MILLIGRAM, QD
  9. LEVOCARNITINE [Concomitant]
     Active Substance: LEVOCARNITINE
     Dosage: 900 MILLIGRAM, QD

REACTIONS (7)
  - Hyperammonaemia [Recovered/Resolved]
  - Loss of consciousness [Recovering/Resolving]
  - Upper respiratory tract inflammation [Unknown]
  - Pyrexia [Unknown]
  - Dehydration [Unknown]
  - Diarrhoea [Unknown]
  - Bronchitis [Unknown]
